FAERS Safety Report 5746345-4 (Version None)
Quarter: 2008Q2

REPORT INFORMATION
  Report Type: 
  Country: None (occurrence: None)
  Receive Date: 20080520
  Receipt Date: 20080520
  Transmission Date: 20081010
  Serious: Yes (Death)
  Sender: FDA-Public Use
  Company Number: None

PATIENT
  Age: 45 Year
  Sex: Female
  Weight: 85.2762 kg

DRUGS (1)
  1. TNKASE        50MG KIT           GENETECH [Suspect]
     Indication: ACUTE MYOCARDIAL INFARCTION
     Dosage: 45MG           ONCE      IV BOLUS
     Route: 040
     Dates: start: 20080319, end: 20080319

REACTIONS (4)
  - REPERFUSION ARRHYTHMIA [None]
  - UNRESPONSIVE TO STIMULI [None]
  - VENTRICULAR FIBRILLATION [None]
  - VENTRICULAR TACHYCARDIA [None]
